FAERS Safety Report 14376224 (Version 1)
Quarter: 2018Q1

REPORT INFORMATION
  Report Type: Spontaneous
  Country: US (occurrence: US)
  Receive Date: 20180111
  Receipt Date: 20180111
  Transmission Date: 20180509
  Serious: Yes (Hospitalization, Other)
  Sender: FDA-Public Use
  Company Number: US-DSJP-DSU-2017-142643

PATIENT

DRUGS (1)
  1. BENICAR HCT [Suspect]
     Active Substance: HYDROCHLOROTHIAZIDE\OLMESARTAN MEDOXOMIL
     Indication: PRODUCT USED FOR UNKNOWN INDICATION
     Dosage: 40/25MG, QD
     Route: 048
     Dates: start: 20060608, end: 20121114

REACTIONS (5)
  - Diverticulum [Unknown]
  - Gastroenteritis viral [Recovered/Resolved]
  - Gastrooesophageal reflux disease [Unknown]
  - Diverticulitis [Unknown]
  - Gastritis [Unknown]

NARRATIVE: CASE EVENT DATE: 20070601
